FAERS Safety Report 10733928 (Version 1)
Quarter: 2015Q1

REPORT INFORMATION
  Report Type: Report from Study
  Country: ES (occurrence: ES)
  Receive Date: 20150123
  Receipt Date: 20150123
  Transmission Date: 20150721
  Serious: Yes (Life-Threatening, Hospitalization, Other)
  Sender: FDA-Public Use
  Company Number: ES-TEVA-526303ISR

PATIENT
  Age: 51 Year
  Sex: Female
  Weight: 48.5 kg

DRUGS (8)
  1. NOLOTIL [Concomitant]
     Active Substance: METAMIZOLE
     Indication: PAIN
     Route: 048
     Dates: start: 20141113
  2. DURALGINA [Concomitant]
     Indication: PAIN
     Route: 048
     Dates: start: 2000
  3. MYOCET [Suspect]
     Active Substance: DOXORUBICIN
     Indication: CERVIX CARCINOMA
     Dosage: LAST DOSE PRIOR TO SAE 19-NOV-2014
     Route: 042
     Dates: start: 20140710
  4. PARACETAMOL [Concomitant]
     Active Substance: ACETAMINOPHEN
     Indication: PAIN
     Route: 048
     Dates: start: 20141113
  5. FERRICAL [Concomitant]
     Indication: BLOOD IRON DECREASED
     Route: 048
     Dates: start: 20140917
  6. CARBOPLATIN. [Suspect]
     Active Substance: CARBOPLATIN
     Indication: CERVIX CARCINOMA
     Dosage: LAST DOSE PRIOR TO SAE 19-NOV-2014
     Route: 042
     Dates: start: 20140710
  7. PANTOPRAZOLE [Concomitant]
     Active Substance: PANTOPRAZOLE SODIUM
     Route: 048
     Dates: start: 2000
  8. IBUPROFEN. [Concomitant]
     Active Substance: IBUPROFEN
     Indication: PAIN
     Route: 048
     Dates: start: 20141016

REACTIONS (4)
  - Febrile neutropenia [Unknown]
  - Anaemia [Unknown]
  - Pancytopenia [Unknown]
  - Thrombocytopenia [Recovered/Resolved]

NARRATIVE: CASE EVENT DATE: 20141130
